FAERS Safety Report 18809452 (Version 1)
Quarter: 2021Q1

REPORT INFORMATION
  Report Type: Spontaneous
  Country: CN (occurrence: CN)
  Receive Date: 20210129
  Receipt Date: 20210129
  Transmission Date: 20210419
  Serious: Yes (Hospitalization, Other)
  Sender: FDA-Public Use
  Company Number: CN-PURDUE-USA-2021-0201325

PATIENT
  Age: 46 Year
  Sex: Female
  Weight: 55 kg

DRUGS (1)
  1. BUPRENORPHINE. [Suspect]
     Active Substance: BUPRENORPHINE
     Indication: SPINAL OSTEOARTHRITIS
     Dosage: 5 MCG, Q1H (STRENGTH 5MG)
     Route: 062
     Dates: start: 20190809, end: 20190811

REACTIONS (7)
  - Nausea [Recovered/Resolved]
  - Dyspnoea [Recovering/Resolving]
  - Restlessness [Recovering/Resolving]
  - Chest discomfort [Recovering/Resolving]
  - Sleep disorder [Recovering/Resolving]
  - Dizziness [Recovered/Resolved]
  - Fatigue [Recovered/Resolved]

NARRATIVE: CASE EVENT DATE: 20190809
